FAERS Safety Report 10036232 (Version 2)
Quarter: 2014Q1

REPORT INFORMATION
  Report Type: Spontaneous
  Country: MY (occurrence: MY)
  Receive Date: 20140325
  Receipt Date: 20140325
  Transmission Date: 20141002
  Serious: Yes (Other)
  Sender: FDA-Public Use
  Company Number: MY-PFIZER INC-2014022045

PATIENT
  Age: 7 Year
  Sex: Male
  Weight: 23 kg

DRUGS (5)
  1. PHENYTOIN SODIUM [Suspect]
     Indication: CONVULSION
     Dosage: 60 MG, 2X/DAY (BD)
     Route: 048
     Dates: start: 201203, end: 201204
  2. PHENOBARBITONE [Suspect]
     Indication: CONVULSION
     Dosage: 45 MG, 2X/DAY (BD)
     Route: 048
     Dates: start: 201204, end: 201204
  3. CARBAMAZEPINE [Suspect]
     Indication: CONVULSION
     Dosage: 300 MG, 2X/DAY (BD)
     Dates: start: 2006, end: 2006
  4. KEPPRA [Concomitant]
     Indication: CONVULSION
     Dosage: 400 MG, 2X/DAY (BD)
     Dates: start: 201007, end: 20120511
  5. EPILIM [Concomitant]
     Indication: CONVULSION
     Dosage: 260 MG, 2X/DAY (BD)
     Dates: start: 2007

REACTIONS (4)
  - Eye swelling [Not Recovered/Not Resolved]
  - Mucosal inflammation [Not Recovered/Not Resolved]
  - Rash maculo-papular [Not Recovered/Not Resolved]
  - Pyrexia [Not Recovered/Not Resolved]
